FAERS Safety Report 17867257 (Version 1)
Quarter: 2020Q2

REPORT INFORMATION
  Report Type: Spontaneous
  Country: US (occurrence: US)
  Receive Date: 20200605
  Receipt Date: 20200605
  Transmission Date: 20200714
  Serious: No
  Sender: FDA-Public Use
  Company Number: US-SUN PHARMACEUTICAL INDUSTRIES LTD-2019R1-205377

PATIENT
  Sex: Female

DRUGS (1)
  1. OXYCODONE [Suspect]
     Active Substance: OXYCODONE
     Indication: PRODUCT USED FOR UNKNOWN INDICATION
     Dosage: FIRST TABLET AT 1 AM AND 2ND DOSE AT 6:30 AM
     Route: 065

REACTIONS (3)
  - Eye irritation [Recovering/Resolving]
  - Nasal pruritus [Recovering/Resolving]
  - Pruritus [Recovering/Resolving]
